FAERS Safety Report 22355228 (Version 1)
Quarter: 2023Q2

REPORT INFORMATION
  Report Type: Spontaneous
  Country: JP (occurrence: JP)
  Receive Date: 20230523
  Receipt Date: 20230523
  Transmission Date: 20230722
  Serious: Yes (Other)
  Sender: FDA-Public Use
  Company Number: JP-Teva Takeda Yakuhin-2023-JP-001216J

PATIENT
  Sex: Male

DRUGS (3)
  1. CERCINE [Suspect]
     Active Substance: DIAZEPAM
     Indication: Muscle spasms
     Route: 048
  2. ETHYL LOFLAZEPATE [Concomitant]
     Active Substance: ETHYL LOFLAZEPATE
     Indication: Product used for unknown indication
     Route: 065
  3. CLONAZEPAM [Concomitant]
     Active Substance: CLONAZEPAM
     Indication: Product used for unknown indication
     Route: 065

REACTIONS (5)
  - Dystonia [Unknown]
  - Bruxism [Unknown]
  - Musculoskeletal stiffness [Unknown]
  - Muscle spasms [Unknown]
  - Gait disturbance [Unknown]
